FAERS Safety Report 4865809-9 (Version None)
Quarter: 2005Q4

REPORT INFORMATION
  Report Type: 
  Country: None (occurrence: None)
  Receive Date: 20051220
  Receipt Date: 20051205
  Transmission Date: 20060501
  Serious: Yes (Hospitalization, Other)
  Sender: FDA-Public Use
  Company Number: 2005-01502

PATIENT
  Age: 56 Year
  Sex: Female
  Weight: 29.4838 kg

DRUGS (6)
  1. VELCADE [Suspect]
     Indication: MULTIPLE MYELOMA
     Dosage: 1.30 MG/M2, 2/WEEK, INTRAVNEOUS
     Route: 031
     Dates: start: 20050628
  2. ZOMETA [Concomitant]
  3. ATROVENT [Concomitant]
  4. SERETIDE (FLUTICASONE PROPIONATE, SALMETEROL) [Concomitant]
  5. LORAZEPAM [Concomitant]
  6. LOSEC (OMEPRAZOLE) [Concomitant]

REACTIONS (4)
  - ABDOMINAL PAIN [None]
  - CHEST PAIN [None]
  - CHILLS [None]
  - VOMITING [None]
